FAERS Safety Report 7357300-5 (Version None)
Quarter: 2011Q1

REPORT INFORMATION
  Report Type: 
  Country: None (occurrence: None)
  Receive Date: 20110311
  Receipt Date: 20110311
  Transmission Date: 20110831
  Serious: No
  Sender: FDA-Public Use
  Company Number: None

PATIENT
  Age: 62 Year
  Sex: Female
  Weight: 115.6672 kg

DRUGS (1)
  1. TEKTURNA [Suspect]
     Indication: HYPERTENSION
     Dosage: 150 MG. DAILY PO
     Route: 048
     Dates: start: 20110228, end: 20110310

REACTIONS (5)
  - SLEEP DISORDER [None]
  - NIGHTMARE [None]
  - BLOOD PRESSURE INCREASED [None]
  - MIDDLE INSOMNIA [None]
  - HEART RATE INCREASED [None]
